FAERS Safety Report 15456590 (Version 1)
Quarter: 2018Q3

REPORT INFORMATION
  Report Type: Spontaneous
  Country: US (occurrence: US)
  Receive Date: 20180928
  Receipt Date: 20180928
  Transmission Date: 20181010
  Serious: Yes (Life-Threatening, Disabling, Other)
  Sender: FDA-Public Use
  Company Number: None

PATIENT
  Age: 75 Year
  Sex: Male
  Weight: 67 kg

DRUGS (1)
  1. XIAFLEX [Suspect]
     Active Substance: COLLAGENASE CLOSTRIDIUM HISTOLYTICUM
     Indication: DUPUYTREN^S CONTRACTURE
     Route: 003

REACTIONS (12)
  - Surgical failure [None]
  - Adverse drug reaction [None]
  - Soft tissue disorder [None]
  - Carpal tunnel decompression [None]
  - Application site pain [None]
  - Malaise [None]
  - Fatigue [None]
  - Inflammation [None]
  - Nerve injury [None]
  - Sensory loss [None]
  - Anaphylactic reaction [None]
  - Systemic infection [None]

NARRATIVE: CASE EVENT DATE: 20180501
